FAERS Safety Report 8542461-2 (Version None)
Quarter: 2012Q3

REPORT INFORMATION
  Report Type: 
  Country: None (occurrence: None)
  Receive Date: 20120726
  Receipt Date: 20110720
  Transmission Date: 20120928
  Serious: Yes (Hospitalization)
  Sender: FDA-Public Use
  Company Number: US-ASTRAZENECA-2008UW25901

PATIENT
  Age: 36 Year
  Sex: Male
  Weight: 129.3 kg

DRUGS (11)
  1. SEROQUEL [Suspect]
     Indication: BIPOLAR DISORDER
     Dosage: 200-400 MG
     Route: 048
     Dates: start: 20060515, end: 20070101
  2. SEROQUEL [Suspect]
     Dosage: 200-400 MG P.O. B.I.D
     Route: 048
     Dates: start: 20060423, end: 20070101
  3. WELLBUTRIN [Concomitant]
     Dates: start: 20070101
  4. ABILIFY [Concomitant]
     Dates: start: 20070101
  5. MIRTAZAPINE [Concomitant]
     Dates: start: 20060525
  6. SEROQUEL [Suspect]
     Indication: DEPRESSION
     Dosage: 200-400 MG
     Route: 048
     Dates: start: 20060515, end: 20070101
  7. LITHIUM CARBONATE [Concomitant]
     Dates: start: 20020101
  8. TRAMADOL HCL [Concomitant]
     Dates: start: 20070418
  9. NEURONTIN [Concomitant]
     Dates: start: 20050525
  10. SEROQUEL [Suspect]
     Dosage: 200-400 MG P.O. B.I.D
     Route: 048
     Dates: start: 20060423, end: 20070101
  11. MIRTAZAPINE [Concomitant]
     Dosage: 30 MG P.O. QHS
     Dates: start: 20060423

REACTIONS (2)
  - TYPE 2 DIABETES MELLITUS [None]
  - DIABETES MELLITUS [None]
